FAERS Safety Report 5505871-3 (Version None)
Quarter: 2007Q4

REPORT INFORMATION
  Report Type: 
  Country: None (occurrence: None)
  Receive Date: 20071102
  Receipt Date: 20071024
  Transmission Date: 20080405
  Serious: Yes (Other)
  Sender: FDA-Public Use
  Company Number: JP-MERCK-0710USA02284

PATIENT
  Age: 35 Year
  Sex: Female

DRUGS (5)
  1. SINGULAIR [Suspect]
     Indication: ALLERGIC BRONCHITIS
     Route: 048
     Dates: start: 20070926, end: 20070927
  2. HOKUNALIN [Concomitant]
     Indication: ALLERGIC BRONCHITIS
     Route: 061
     Dates: start: 20070926
  3. MEDICON [Concomitant]
     Indication: ALLERGIC BRONCHITIS
     Route: 048
     Dates: start: 20070926
  4. MUCODYNE [Concomitant]
     Indication: SPUTUM RETENTION
     Route: 048
  5. CINAL [Concomitant]
     Indication: ALLERGIC BRONCHITIS
     Route: 048
     Dates: start: 20070926

REACTIONS (1)
  - MULTIPLE SYSTEM ATROPHY [None]
